FAERS Safety Report 12081676 (Version 1)
Quarter: 2016Q1

REPORT INFORMATION
  Report Type: Spontaneous
  Country: US (occurrence: US)
  Receive Date: 20160216
  Receipt Date: 20160216
  Transmission Date: 20160526
  Serious: No
  Sender: FDA-Public Use
  Company Number: US-PERRIGO-15US003998

PATIENT
  Age: 1 Year
  Sex: Female
  Weight: 3.18 kg

DRUGS (1)
  1. IBUPROFEN. [Suspect]
     Active Substance: IBUPROFEN
     Indication: PYREXIA
     Dosage: 70 MG, SINGLE
     Route: 048
     Dates: start: 20150413, end: 20150413

REACTIONS (4)
  - Urticaria [Recovering/Resolving]
  - Cough [Recovering/Resolving]
  - Drug administered to patient of inappropriate age [Recovered/Resolved]
  - Periorbital oedema [Recovering/Resolving]

NARRATIVE: CASE EVENT DATE: 20150413
